FAERS Safety Report 24269588 (Version 1)
Quarter: 2024Q3

REPORT INFORMATION
  Report Type: Report from Study
  Country: US (occurrence: US)
  Receive Date: 20240830
  Receipt Date: 20240830
  Transmission Date: 20241016
  Serious: Yes (Other)
  Sender: ABBVIE
  Company Number: US-ABBVIE-5896666

PATIENT
  Age: 40 Year
  Sex: Male

DRUGS (9)
  1. HUMIRA [Suspect]
     Active Substance: ADALIMUMAB
     Indication: Product used for unknown indication
     Route: 058
     Dates: start: 20230315, end: 20230901
  2. GABAPENTIN [Concomitant]
     Active Substance: GABAPENTIN
     Indication: Rheumatoid arthritis
     Dates: start: 202401
  3. METHOTREXATE [Concomitant]
     Active Substance: METHOTREXATE
     Indication: Rheumatoid arthritis
     Dates: start: 202310
  4. NAPROXEN [Concomitant]
     Active Substance: NAPROXEN
     Indication: Rheumatoid arthritis
     Dates: start: 202310
  5. FOLIC ACID [Concomitant]
     Active Substance: FOLIC ACID
     Indication: Rheumatoid arthritis
     Dates: start: 2020
  6. TIZANIDINE [Concomitant]
     Active Substance: TIZANIDINE
     Indication: Rheumatoid arthritis
     Dates: start: 202310
  7. HYDROCODONE [Concomitant]
     Active Substance: HYDROCODONE
     Indication: Rheumatoid arthritis
  8. PREDNISONE [Concomitant]
     Active Substance: PREDNISONE
     Indication: Rheumatoid arthritis
     Dates: start: 2020
  9. ACETAZOLAMIDE [Concomitant]
     Active Substance: ACETAZOLAMIDE
     Indication: Glaucoma
     Dates: start: 202406

REACTIONS (1)
  - Chemotherapy [Not Recovered/Not Resolved]

NARRATIVE: CASE EVENT DATE: 20231001
